FAERS Safety Report 8334100-0 (Version None)
Quarter: 2012Q1

REPORT INFORMATION
  Report Type: 
  Country: None (occurrence: None)
  Receive Date: 20120328
  Receipt Date: 20100526
  Transmission Date: 20120608
  Serious: Yes (Other)
  Sender: FDA-Public Use
  Company Number: PHHY2010US34967

PATIENT

DRUGS (2)
  1. VALTURNA [Suspect]
  2. DIOVAN [Suspect]

REACTIONS (1)
  - ANGIOEDEMA [None]
